FAERS Safety Report 25367162 (Version 4)
Quarter: 2025Q3

REPORT INFORMATION
  Report Type: Report from Study
  Country: US (occurrence: US)
  Receive Date: 20250528
  Receipt Date: 20250924
  Transmission Date: 20251020
  Serious: Yes (Other)
  Sender: SUNOVION
  Company Number: US-SMPA-2025SPA005619

PATIENT
  Age: 67 Year
  Sex: Male

DRUGS (4)
  1. ORGOVYX [Suspect]
     Active Substance: RELUGOLIX
     Indication: Prostate cancer
     Route: 048
     Dates: start: 20250425, end: 20250425
  2. ORGOVYX [Suspect]
     Active Substance: RELUGOLIX
     Dosage: 120 MG, QD, TAKEN PRIOR TO BIOLOGICS
     Route: 048
     Dates: start: 20250426
  3. ORGOVYX [Suspect]
     Active Substance: RELUGOLIX
     Dosage: 120 MG, QD, STARTED WITH BIOLOGICS
     Route: 048
     Dates: start: 20250519
  4. XTANDI [Concomitant]
     Active Substance: ENZALUTAMIDE
     Indication: Product used for unknown indication

REACTIONS (7)
  - Prostate ablation [Unknown]
  - Male genital atrophy [Unknown]
  - Frustration tolerance decreased [Unknown]
  - Cold sweat [Unknown]
  - Goitre [Unknown]
  - Diarrhoea [Unknown]
  - Hot flush [Unknown]
